FAERS Safety Report 5332381-9 (Version None)
Quarter: 2007Q2

REPORT INFORMATION
  Report Type: 
  Country: None (occurrence: None)
  Receive Date: 20070523
  Receipt Date: 20070515
  Transmission Date: 20071010
  Serious: Yes (Other)
  Sender: FDA-Public Use
  Company Number: B0471766A

PATIENT
  Age: 58 Year
  Sex: Female

DRUGS (7)
  1. AVANDIA [Suspect]
     Indication: DIABETES MELLITUS
     Dosage: 2MG UNKNOWN
     Route: 065
     Dates: end: 20051201
  2. AVANDAMET [Suspect]
     Indication: DIABETES MELLITUS
     Route: 048
     Dates: start: 20051001
  3. LIPITOR [Concomitant]
  4. ASPIRIN [Concomitant]
  5. DIAMICRON [Concomitant]
  6. CALCICHEW [Concomitant]
  7. FORTEO [Concomitant]

REACTIONS (1)
  - PATHOLOGICAL FRACTURE [None]
